FAERS Safety Report 8523049 (Version 4)
Quarter: 2013Q2

REPORT INFORMATION
  Report Type: Spontaneous
  Country: US (occurrence: US)
  Receive Date: 20120420
  Receipt Date: 20130513
  Transmission Date: 20140414
  Serious: Yes (Other)
  Sender: FDA-Public Use
  Company Number: US-PFIZER INC-2012096316

PATIENT
  Age: 58 Year
  Sex: Female
  Weight: 57 kg

DRUGS (5)
  1. LYRICA [Suspect]
     Indication: NEURALGIA
     Dosage: 75 MG, DAILY
     Route: 048
  2. LYRICA [Suspect]
     Indication: FIBROMYALGIA
     Dosage: 25MG IN MORNING AND 25MG IN AFTERNOON AND 25MG AND 75MG AT NIGHT
     Route: 048
     Dates: end: 20080101
  3. LYRICA [Suspect]
     Indication: NEUROPATHY PERIPHERAL
  4. LORTAB [Concomitant]
     Indication: PAIN
     Dosage: UNK, 2X/DAY
  5. XANAX [Concomitant]
     Indication: INSOMNIA
     Dosage: 1 MG, 3X/DAY

REACTIONS (11)
  - Tooth loss [Unknown]
  - Tooth disorder [Unknown]
  - Tooth abscess [Unknown]
  - Enamel anomaly [Unknown]
  - Weight decreased [Unknown]
  - Heart rate increased [Unknown]
  - Drug ineffective [Unknown]
  - Sensitivity of teeth [Unknown]
  - Ageusia [Unknown]
  - Tooth discolouration [Unknown]
  - Mastication disorder [Unknown]
